FAERS Safety Report 5717239-5 (Version None)
Quarter: 2008Q2

REPORT INFORMATION
  Report Type: 
  Country: None (occurrence: None)
  Receive Date: 20080424
  Receipt Date: 20080415
  Transmission Date: 20081010
  Serious: Yes (Other)
  Sender: FDA-Public Use
  Company Number: JP-PFIZER INC-2008034082

PATIENT
  Age: 84 Year
  Sex: Female

DRUGS (1)
  1. UNASYN [Suspect]
     Indication: INFECTION PROPHYLAXIS
     Dosage: DAILY DOSE:6GRAM
     Route: 042
     Dates: start: 20080330, end: 20080402

REACTIONS (1)
  - EYELID PTOSIS [None]
